FAERS Safety Report 13985830 (Version 1)
Quarter: 2017Q3

REPORT INFORMATION
  Report Type: Spontaneous
  Country: US (occurrence: US)
  Receive Date: 20170919
  Receipt Date: 20170919
  Transmission Date: 20171128
  Serious: No
  Sender: FDA-Public Use
  Company Number: US-PFIZER INC-2017401280

PATIENT
  Age: 63 Year
  Sex: Female
  Weight: 53.7 kg

DRUGS (2)
  1. RELPAX [Suspect]
     Active Substance: ELETRIPTAN HYDROBROMIDE
     Indication: HEADACHE
     Dosage: 40 MG, AS NEEDED (40MG TABLETS BY MOUTH IF NEEDED FOR MIGRAINE, REPEAT 1 TABLET AFTER 2 HOURS IF NE)
     Route: 048
     Dates: start: 2014
  2. RELPAX [Suspect]
     Active Substance: ELETRIPTAN HYDROBROMIDE
     Indication: MIGRAINE

REACTIONS (1)
  - Drug effect incomplete [Unknown]
